FAERS Safety Report 8929217 (Version 1)
Quarter: 2012Q4

REPORT INFORMATION
  Report Type: 
  Country: US (occurrence: US)
  Receive Date: 20121128
  Receipt Date: 20121128
  Transmission Date: 20130627
  Serious: Yes (Death, Hospitalization)
  Sender: FDA-Public Use
  Company Number: US-SANOFI-AVENTIS-2012SA085265

PATIENT
  Age: 74 Year
  Sex: Male

DRUGS (13)
  1. PLAVIX [Suspect]
     Indication: CORONARY ARTERY DISEASE
     Route: 048
  2. PLAVIX [Suspect]
     Indication: ATRIAL FIBRILLATION
     Route: 048
  3. PLAVIX [Suspect]
     Indication: CONGESTIVE HEART FAILURE
     Route: 048
  4. PLAVIX [Suspect]
     Indication: CEREBROVASCULAR ACCIDENT
     Route: 048
  5. POTASSIUM [Concomitant]
  6. LASIX [Concomitant]
  7. CLONIDINE [Concomitant]
  8. ALLOPURINOL [Concomitant]
  9. ZOCOR [Concomitant]
  10. HYDRALAZINE [Concomitant]
  11. NIFEDIPINE [Concomitant]
  12. PROTONIX [Concomitant]
  13. CYPROHEPTADINE [Concomitant]

REACTIONS (1)
  - Pneumonia [Fatal]
